FAERS Safety Report 25351661 (Version 1)
Quarter: 2025Q2

REPORT INFORMATION
  Report Type: Spontaneous
  Country: IN (occurrence: IN)
  Receive Date: 20250523
  Receipt Date: 20250523
  Transmission Date: 20250717
  Serious: Yes (Hospitalization)
  Sender: STRIDES
  Company Number: IN-STRIDES ARCOLAB LIMITED-2025SP006279

PATIENT
  Age: 37 Year
  Sex: Male

DRUGS (6)
  1. TENOFOVIR [Suspect]
     Active Substance: TENOFOVIR
     Indication: HIV infection
     Route: 065
  2. TENOFOVIR [Suspect]
     Active Substance: TENOFOVIR
     Route: 065
  3. LAMIVUDINE [Concomitant]
     Active Substance: LAMIVUDINE
     Indication: HIV infection
     Route: 065
  4. LAMIVUDINE [Concomitant]
     Active Substance: LAMIVUDINE
     Route: 065
  5. NEVIRAPINE [Concomitant]
     Active Substance: NEVIRAPINE
     Indication: HIV infection
     Route: 065
  6. NEVIRAPINE [Concomitant]
     Active Substance: NEVIRAPINE
     Route: 065

REACTIONS (1)
  - Lichenoid keratosis [Recovered/Resolved]
